FAERS Safety Report 10370843 (Version 1)
Quarter: 2014Q3

REPORT INFORMATION
  Report Type: Spontaneous
  Country: US (occurrence: US)
  Receive Date: 20140808
  Receipt Date: 20140808
  Transmission Date: 20150326
  Serious: No
  Sender: FDA-Public Use
  Company Number: US-GLAXOSMITHKLINE-A1060020A

PATIENT
  Age: 56 Year
  Sex: Female

DRUGS (4)
  1. VITAMIN C [Concomitant]
     Active Substance: ASCORBIC ACID
  2. ANTRONEX [Concomitant]
  3. BECONASE AQ [Suspect]
     Active Substance: BECLOMETHASONE DIPROPIONATE MONOHYDRATE
     Indication: INFECTION PROPHYLAXIS
     Dosage: 4SPR AT NIGHT
     Route: 045
     Dates: start: 198402
  4. MULTIVITAMIN [Concomitant]
     Active Substance: VITAMINS

REACTIONS (6)
  - Palpitations [Unknown]
  - Glossodynia [Not Recovered/Not Resolved]
  - Sensation of foreign body [Unknown]
  - Ageusia [Unknown]
  - Product quality issue [Unknown]
  - Paraesthesia oral [Unknown]
